FAERS Safety Report 8133071 (Version 19)
Quarter: 2014Q4

REPORT INFORMATION
  Report Type: Report from Study
  Country: DE (occurrence: DE)
  Receive Date: 20110913
  Receipt Date: 20141210
  Transmission Date: 20150529
  Serious: Yes (Death, Hospitalization)
  Sender: FDA-Public Use
  Company Number: DE-ROCHE-800984

PATIENT
  Age: 44 Year
  Sex: Male
  Weight: 70 kg

DRUGS (15)
  1. NALOXONE HYDROCHLORIDE. [Concomitant]
     Active Substance: NALOXONE HYDROCHLORIDE
     Route: 065
     Dates: start: 201107
  2. SIMVASTATIN. [Concomitant]
     Active Substance: SIMVASTATIN
     Route: 065
  3. LERCADIP [Concomitant]
     Active Substance: LERCANIDIPINE HYDROCHLORIDE
     Dosage: REPORTED AS ^LERCAPID 10^
     Route: 065
  4. PANTOZOL [Concomitant]
     Active Substance: PANTOPRAZOLE SODIUM
     Route: 065
     Dates: start: 201107
  5. ASPIRIN. [Concomitant]
     Active Substance: ASPIRIN
     Route: 065
  6. NOVALGIN [Concomitant]
     Active Substance: METAMIZOLE SODIUM
     Route: 065
     Dates: start: 201107
  7. DEXAMETHASON [Concomitant]
     Active Substance: DEXAMETHASONE
     Dosage: TOTAL DAILY DOSE 4/MG
     Route: 065
     Dates: start: 20110901, end: 20110901
  8. TOREM [Concomitant]
     Active Substance: TORSEMIDE
     Route: 065
     Dates: start: 201107
  9. RAMIPRIL. [Concomitant]
     Active Substance: RAMIPRIL
     Route: 065
     Dates: start: 20110902, end: 20110903
  10. LYRICA [Concomitant]
     Active Substance: PREGABALIN
     Route: 065
     Dates: start: 201107
  11. BISOPROLOL [Concomitant]
     Active Substance: BISOPROLOL
     Route: 065
  12. TILIDINE HYDROCHLORIDE [Concomitant]
     Active Substance: TILIDINE HYDROCHLORIDE
     Dosage: 150/12 MG
     Route: 065
     Dates: start: 201107
  13. VEMURAFENIB [Suspect]
     Active Substance: VEMURAFENIB
     Indication: MALIGNANT MELANOMA
     Dosage: DATE OF LAST DOSE PRIOR TO SAE:01 SEP 2011
     Route: 048
     Dates: start: 20110824, end: 20110902
  14. METOCLOPRAMIDE. [Concomitant]
     Active Substance: METOCLOPRAMIDE
     Dosage: DROPS
     Route: 065
     Dates: start: 201107
  15. ALLOPURINOL. [Concomitant]
     Active Substance: ALLOPURINOL
     Dosage: TOTAL DAILY DOSE 300/MG
     Route: 065
     Dates: end: 20110903

REACTIONS (1)
  - Tumour haemorrhage [Fatal]

NARRATIVE: CASE EVENT DATE: 20110901
